FAERS Safety Report 14164015 (Version 1)
Quarter: 2017Q4

REPORT INFORMATION
  Report Type: Spontaneous
  Country: US (occurrence: US)
  Receive Date: 20171107
  Receipt Date: 20171107
  Transmission Date: 20180321
  Serious: Yes (Hospitalization, Other)
  Sender: FDA-Public Use
  Company Number: US-AMGEN-USASP2017166867

PATIENT
  Age: 64 Year
  Sex: Female

DRUGS (8)
  1. PROZAC [Concomitant]
     Active Substance: FLUOXETINE HYDROCHLORIDE
     Dosage: 40 MG, QD
  2. THIAMINE. [Concomitant]
     Active Substance: THIAMINE
     Dosage: 100 MG, QD
  3. ENBREL [Suspect]
     Active Substance: ETANERCEPT
     Indication: RHEUMATOID ARTHRITIS
     Dosage: 50 MG, QWK
     Route: 058
  4. CLARITHROMYCIN. [Concomitant]
     Active Substance: CLARITHROMYCIN
     Dosage: 500 MG, Q12H
  5. FOLIC ACID. [Concomitant]
     Active Substance: FOLIC ACID
     Dosage: 1 MG, QD
  6. AMOXICILLIN. [Concomitant]
     Active Substance: AMOXICILLIN
     Dosage: 1000 MG, Q12H
  7. PANTOPRAZOLE [Concomitant]
     Active Substance: PANTOPRAZOLE
     Dosage: 40 MG, BID
  8. VANCOMYCIN [Concomitant]
     Active Substance: VANCOMYCIN
     Dosage: 1000 MG, Q12H

REACTIONS (2)
  - Gastrointestinal haemorrhage [Not Recovered/Not Resolved]
  - Immunodeficiency [Unknown]
